FAERS Safety Report 25001425 (Version 4)
Quarter: 2025Q3

REPORT INFORMATION
  Report Type: Spontaneous
  Country: GB (occurrence: GB)
  Receive Date: 20250223
  Receipt Date: 20250807
  Transmission Date: 20251021
  Serious: Yes (Life-Threatening, Hospitalization, Other)
  Sender: ADVANZ PHARMA
  Company Number: GB-MLMSERVICE-20250203-PI391548-00270-1

PATIENT

DRUGS (34)
  1. PREDNISOLONE [Suspect]
     Active Substance: PREDNISOLONE
     Indication: Immunosuppressant drug therapy
  2. PREDNISOLONE [Suspect]
     Active Substance: PREDNISOLONE
  3. TACROLIMUS [Suspect]
     Active Substance: TACROLIMUS
     Indication: Immunosuppressant drug therapy
  4. MYCOPHENOLIC ACID [Suspect]
     Active Substance: MYCOPHENOLIC ACID
     Indication: Immunosuppressant drug therapy
  5. AMLODIPINE [Concomitant]
     Active Substance: AMLODIPINE BESYLATE
  6. AMLODIPINE [Concomitant]
     Active Substance: AMLODIPINE BESYLATE
  7. AMLODIPINE [Concomitant]
     Active Substance: AMLODIPINE BESYLATE
  8. AMLODIPINE [Concomitant]
     Active Substance: AMLODIPINE BESYLATE
  9. ASPIRIN [Concomitant]
     Active Substance: ASPIRIN
  10. ASPIRIN [Concomitant]
     Active Substance: ASPIRIN
  11. ASPIRIN [Concomitant]
     Active Substance: ASPIRIN
  12. ASPIRIN [Concomitant]
     Active Substance: ASPIRIN
  13. CANAGLIFLOZIN [Concomitant]
     Active Substance: CANAGLIFLOZIN
  14. CANAGLIFLOZIN [Concomitant]
     Active Substance: CANAGLIFLOZIN
  15. CANAGLIFLOZIN [Concomitant]
     Active Substance: CANAGLIFLOZIN
  16. CANAGLIFLOZIN [Concomitant]
     Active Substance: CANAGLIFLOZIN
  17. CHOLECALCIFEROL [Concomitant]
     Active Substance: CHOLECALCIFEROL
  18. CHOLECALCIFEROL [Concomitant]
     Active Substance: CHOLECALCIFEROL
  19. CHOLECALCIFEROL [Concomitant]
     Active Substance: CHOLECALCIFEROL
  20. CHOLECALCIFEROL [Concomitant]
     Active Substance: CHOLECALCIFEROL
  21. IRBESARTAN [Concomitant]
     Active Substance: IRBESARTAN
  22. IRBESARTAN [Concomitant]
     Active Substance: IRBESARTAN
  23. IRBESARTAN [Concomitant]
     Active Substance: IRBESARTAN
  24. IRBESARTAN [Concomitant]
     Active Substance: IRBESARTAN
  25. LANSOPRAZOLE [Concomitant]
     Active Substance: LANSOPRAZOLE
  26. LANSOPRAZOLE [Concomitant]
     Active Substance: LANSOPRAZOLE
  27. LANSOPRAZOLE [Concomitant]
     Active Substance: LANSOPRAZOLE
  28. LANSOPRAZOLE [Concomitant]
     Active Substance: LANSOPRAZOLE
  29. SODIUM BICARBONATE [Concomitant]
     Active Substance: SODIUM BICARBONATE
  30. SODIUM BICARBONATE [Concomitant]
     Active Substance: SODIUM BICARBONATE
  31. SODIUM BICARBONATE [Concomitant]
     Active Substance: SODIUM BICARBONATE
  32. SODIUM BICARBONATE [Concomitant]
     Active Substance: SODIUM BICARBONATE
  33. LEVETIRACETAM [Concomitant]
     Active Substance: LEVETIRACETAM
     Indication: Seizure prophylaxis
  34. DEXAMETHASONE [Concomitant]
     Active Substance: DEXAMETHASONE
     Indication: Oedema

REACTIONS (10)
  - Generalised tonic-clonic seizure [Recovering/Resolving]
  - Hemianopia homonymous [Recovering/Resolving]
  - Partial seizures [Recovering/Resolving]
  - Hemiparesis [Recovering/Resolving]
  - Facial paresis [Recovering/Resolving]
  - Fatigue [Recovering/Resolving]
  - Cerebral fungal infection [Recovering/Resolving]
  - Headache [Recovering/Resolving]
  - Pneumonia fungal [Recovering/Resolving]
  - Fungal skin infection [Recovering/Resolving]
